FAERS Safety Report 5497489-6 (Version None)
Quarter: 2007Q4

REPORT INFORMATION
  Report Type: 
  Country: None (occurrence: None)
  Receive Date: 20071025
  Receipt Date: 20061122
  Transmission Date: 20080405
  Serious: No
  Sender: FDA-Public Use
  Company Number: A0628467A

PATIENT
  Age: 67 Year
  Sex: Female

DRUGS (10)
  1. ADVAIR DISKUS 100/50 [Suspect]
     Indication: ASTHMA
     Dosage: 1PUFF TWICE PER DAY
     Route: 055
     Dates: start: 20061120, end: 20061121
  2. LANTUS [Concomitant]
  3. GLYBURIDE [Concomitant]
  4. GLUCOPHAGE [Concomitant]
  5. ZOLOFT [Concomitant]
  6. COUMADIN [Concomitant]
  7. ALLEGRA [Concomitant]
  8. TOPROL-XL [Concomitant]
  9. DIGOXIN [Concomitant]
  10. LASIX [Concomitant]

REACTIONS (1)
  - ARTHRALGIA [None]
